FAERS Safety Report 8018356-X (Version None)
Quarter: 2012Q1

REPORT INFORMATION
  Report Type: 
  Country: None (occurrence: None)
  Receive Date: 20120103
  Receipt Date: 20111229
  Transmission Date: 20120608
  Serious: Yes (Other)
  Sender: FDA-Public Use
  Company Number: US-PFIZER INC-2011194455

PATIENT
  Age: 15 Year
  Sex: Female

DRUGS (3)
  1. LORATADINE [Interacting]
     Dosage: 10 MG, DAILY
  2. ZOLOFT [Suspect]
     Indication: MAJOR DEPRESSION
     Dosage: UNK
     Route: 048
  3. ALBUTEROL [Concomitant]
     Indication: ASTHMA
     Dosage: UNK

REACTIONS (4)
  - DRUG INTERACTION [None]
  - MEDICATION ERROR [None]
  - SUICIDAL IDEATION [None]
  - DEPRESSION [None]
